FAERS Safety Report 5033085-2 (Version None)
Quarter: 2006Q2

REPORT INFORMATION
  Report Type: 
  Country: None (occurrence: None)
  Receive Date: 20060620
  Receipt Date: 20060531
  Transmission Date: 20061013
  Serious: Yes (Hospitalization, Other)
  Sender: FDA-Public Use
  Company Number: US_0503114073

PATIENT
  Age: 31 Year
  Sex: Female

DRUGS (17)
  1. ZYPREXA [Suspect]
     Indication: BIPOLAR DISORDER
     Dosage: 5 MG
     Dates: start: 19990114
  2. PROZAC [Suspect]
     Dosage: 10 MG
  3. CARBAMAZEPINE [Concomitant]
  4. RHINOCORT [Concomitant]
  5. NEURONTIN [Concomitant]
  6. AMBIEN [Concomitant]
  7. TRAZODONE HCL [Concomitant]
  8. ALBUTEROL [Concomitant]
  9. FIORICET [Concomitant]
  10. SONATA [Concomitant]
  11. SEROQUEL [Concomitant]
  12. NASACORT AZ (TRIAMCINOLONE ACETONIDE) [Concomitant]
  13. CLARITIN [Concomitant]
  14. PATANOL [Concomitant]
  15. NAPROXEN SODIUM [Concomitant]
  16. XANAX (ALPRAZOLAM DUM) [Concomitant]
  17. ATIVAN [Concomitant]

REACTIONS (9)
  - ANION GAP INCREASED [None]
  - BLOOD ALKALINE PHOSPHATASE INCREASED [None]
  - DIABETES MELLITUS [None]
  - DIABETIC COMA [None]
  - DIABETIC KETOACIDOSIS [None]
  - HYPERINSULINISM [None]
  - OBESITY [None]
  - PCO2 DECREASED [None]
  - SINUS TACHYCARDIA [None]
